FAERS Safety Report 7514014-6 (Version None)
Quarter: 2011Q2

REPORT INFORMATION
  Report Type: 
  Country: None (occurrence: None)
  Receive Date: 20110531
  Receipt Date: 20110524
  Transmission Date: 20111010
  Serious: Yes (Hospitalization)
  Sender: FDA-Public Use
  Company Number: FR-B.I. PHARMACEUTICALS,INC./RIDGEFIELD-2011-FF-00520FF

PATIENT
  Sex: Male

DRUGS (10)
  1. ALLOPURINOL [Concomitant]
     Dosage: 400 MG
  2. TRAMADOL HCL [Concomitant]
  3. METFORMIN HCL [Concomitant]
  4. PRAMIPEXOLE DIHYDROCHLORIDE [Suspect]
     Dosage: 0.26 MG
     Route: 048
     Dates: end: 20110301
  5. TAMSULOSIN HCL [Concomitant]
     Route: 048
  6. SELEGILINE HCL [Suspect]
     Dosage: 1.25 MG
     Route: 048
     Dates: end: 20110301
  7. SINEMET [Concomitant]
  8. MIRTAZAPINE [Concomitant]
  9. CONTRAMAL  LP [Concomitant]
     Dosage: 100 MG
  10. CLONAZEPAM [Suspect]
     Dosage: 2.5 MG/ML
     Route: 048

REACTIONS (1)
  - CONFUSIONAL STATE [None]
